FAERS Safety Report 9410357 (Version 4)
Quarter: 2013Q3

REPORT INFORMATION
  Report Type: Report from Study
  Country: FR (occurrence: FR)
  Receive Date: 20130719
  Receipt Date: 20130909
  Transmission Date: 20140515
  Serious: Yes (Hospitalization)
  Sender: FDA-Public Use
  Company Number: FR-ELI_LILLY_AND_COMPANY-FR201307004747

PATIENT
  Age: 66 Year
  Sex: Male
  Weight: 57 kg

DRUGS (4)
  1. PEMETREXED [Suspect]
     Indication: NON-SMALL CELL LUNG CANCER
     Dosage: 830 MG, OTHER
     Route: 042
     Dates: start: 20120802, end: 20120802
  2. FOLIC ACID [Concomitant]
     Dosage: UNK
     Dates: start: 20120717, end: 20120913
  3. VITAMIN B12 [Concomitant]
     Dosage: UNK
     Dates: start: 20120717, end: 20120913
  4. DEXAMETHASONE [Concomitant]
     Dosage: UNK
     Dates: start: 20120717, end: 20120913

REACTIONS (1)
  - Pancytopenia [Recovered/Resolved]
